FAERS Safety Report 8838648 (Version 2)
Quarter: 2013Q1

REPORT INFORMATION
  Report Type: Spontaneous
  Country: US (occurrence: US)
  Receive Date: 20121012
  Receipt Date: 20130119
  Transmission Date: 20140127
  Serious: No
  Sender: FDA-Public Use
  Company Number: US-009507513-1210USA005285

PATIENT
  Age: 55 Year
  Sex: Male

DRUGS (11)
  1. JANUVIA [Suspect]
     Indication: TYPE 2 DIABETES MELLITUS
     Dosage: 100 MG, QD
     Route: 048
     Dates: start: 201111
  2. COREG [Concomitant]
  3. VALIUM [Concomitant]
  4. EFFIENT [Concomitant]
  5. GLIPIZIDE [Concomitant]
  6. GLUCOPHAGE [Concomitant]
  7. PRAVASTATIN SODIUM [Concomitant]
  8. RAMIPRIL [Concomitant]
  9. GABAPENTIN [Concomitant]
  10. HYDROCODONE [Concomitant]
  11. ACETAMINOPHEN [Concomitant]

REACTIONS (1)
  - Blood glucose abnormal [Not Recovered/Not Resolved]
